FAERS Safety Report 10231148 (Version 2)
Quarter: 2014Q2

REPORT INFORMATION
  Report Type: Report from Study
  Country: AU (occurrence: AU)
  Receive Date: 20140611
  Receipt Date: 20140625
  Transmission Date: 20141212
  Serious: No
  Sender: FDA-Public Use
  Company Number: AU-UCBSA-2014000672

PATIENT
  Age: 34 Year
  Sex: Male
  Weight: 81 kg

DRUGS (2)
  1. LACOSAMIDE EP [Suspect]
     Indication: EPILEPSY
     Dosage: 100/50 MG LCM, 200MG CBZ
     Route: 048
     Dates: start: 20131029
  2. FERRO-GRADUMET [Concomitant]
     Indication: BLOOD IRON DECREASED
     Dosage: 105 MG, ONCE DAILY (QD)
     Route: 048
     Dates: start: 20131130

REACTIONS (1)
  - Sinus bradycardia [Not Recovered/Not Resolved]
